FAERS Safety Report 7104932-5 (Version None)
Quarter: 2010Q4

REPORT INFORMATION
  Report Type: 
  Country: None (occurrence: None)
  Receive Date: 20101116
  Receipt Date: 20101105
  Transmission Date: 20110411
  Serious: Yes (Hospitalization)
  Sender: FDA-Public Use
  Company Number: US-CELGENEUS-163-21880-10111015

PATIENT
  Sex: Male

DRUGS (7)
  1. REVLIMID [Suspect]
     Indication: MULTIPLE MYELOMA
     Route: 048
     Dates: start: 20100601
  2. REVLIMID [Suspect]
     Route: 048
     Dates: start: 20100701
  3. XELODA [Concomitant]
     Route: 048
  4. VALTREX [Concomitant]
     Route: 048
  5. PREVACID [Concomitant]
     Route: 065
  6. CYTOMEL [Concomitant]
     Route: 048
  7. LEVOXYL [Concomitant]
     Route: 048

REACTIONS (1)
  - NEOPLASM MALIGNANT [None]
